FAERS Safety Report 4541180-7 (Version None)
Quarter: 2004Q4

REPORT INFORMATION
  Report Type: 
  Country: None (occurrence: None)
  Receive Date: 20041227
  Receipt Date: 20041210
  Transmission Date: 20050328
  Serious: No
  Sender: FDA-Public Use
  Company Number: 12759304

PATIENT
  Age: 36 Year
  Sex: Male

DRUGS (4)
  1. NALTREXONE HCL [Suspect]
     Indication: DRUG WITHDRAWAL SYNDROME
     Dosage: 50 MILLIGRAM 1 DAY
     Route: 048
     Dates: start: 20040414, end: 20040801
  2. CO-PROXAMOL (PROPOXYPHENE + APAP) [Concomitant]
  3. METHADONE HCL (METHADONE HCL) [Concomitant]
  4. ESOMEPRAZOLE (ESOMEPRAZOLE) [Concomitant]

REACTIONS (4)
  - CONDITION AGGRAVATED [None]
  - GLOBULINS INCREASED [None]
  - HEPATITIS C [None]
  - PROTEIN TOTAL INCREASED [None]
